FAERS Safety Report 12857625 (Version 2)
Quarter: 2016Q4

REPORT INFORMATION
  Report Type: Spontaneous
  Country: MY (occurrence: MY)
  Receive Date: 20161018
  Receipt Date: 20161104
  Transmission Date: 20170207
  Serious: Yes (Hospitalization)
  Sender: FDA-Public Use
  Company Number: MY-BAYER-2016-195954

PATIENT
  Age: 37 Year
  Sex: Male

DRUGS (2)
  1. YTTRIUM (90 Y) [Concomitant]
     Active Substance: YTTRIUM Y-90
     Dosage: UNK
     Dates: start: 20160805
  2. NEXAVAR FILM-COATED TABLETS 200MG [Suspect]
     Active Substance: SORAFENIB
     Indication: HEPATOCELLULAR CARCINOMA
     Dosage: DAILY DOSE 800 MG
     Route: 048
     Dates: start: 20160929

REACTIONS (2)
  - Hypoglycaemia [None]
  - Syncope [Unknown]

NARRATIVE: CASE EVENT DATE: 20160929
